FAERS Safety Report 6990096-5 (Version None)
Quarter: 2010Q3

REPORT INFORMATION
  Report Type: 
  Country: None (occurrence: None)
  Receive Date: 20100916
  Receipt Date: 20100419
  Transmission Date: 20110219
  Serious: Yes (Other)
  Sender: FDA-Public Use
  Company Number: DE-PFIZER INC-2010036104

PATIENT
  Age: 55 Year
  Sex: Female
  Weight: 70 kg

DRUGS (1)
  1. LYRICA [Suspect]
     Indication: GENERALISED ANXIETY DISORDER
     Dosage: 50MG AND 75MG ONCE DAILY
     Route: 048
     Dates: start: 20080801

REACTIONS (2)
  - TUNNEL VISION [None]
  - VISUAL ACUITY REDUCED [None]
